FAERS Safety Report 12854462 (Version 1)
Quarter: 2016Q4

REPORT INFORMATION
  Report Type: Spontaneous
  Country: JP (occurrence: JP)
  Receive Date: 20161017
  Receipt Date: 20161017
  Transmission Date: 20170207
  Serious: Yes (Other)
  Sender: FDA-Public Use
  Company Number: JP-BRISTOL-MYERS SQUIBB COMPANY-BMS-2016-086396

PATIENT
  Age: 26 Year
  Sex: Female

DRUGS (6)
  1. HYDROXYUREA. [Suspect]
     Active Substance: HYDROXYUREA
     Indication: ESSENTIAL THROMBOCYTHAEMIA
     Dosage: 2000 MG, QD
     Route: 048
  2. HYDROXYUREA. [Suspect]
     Active Substance: HYDROXYUREA
     Dosage: 1500 MG, QD
     Route: 048
     Dates: start: 201507
  3. HYDROXYUREA. [Suspect]
     Active Substance: HYDROXYUREA
     Dosage: 1000 MG, QD
     Route: 048
  4. ANAGRELIDE [Suspect]
     Active Substance: ANAGRELIDE
     Dosage: 3 MG, QD
     Route: 065
     Dates: start: 201512
  5. ANAGRELIDE [Suspect]
     Active Substance: ANAGRELIDE
     Dosage: 1.5 MG, QD
     Route: 065
     Dates: start: 201507
  6. ANAGRELIDE [Suspect]
     Active Substance: ANAGRELIDE
     Indication: ESSENTIAL THROMBOCYTHAEMIA
     Dosage: 1 MG, QD
     Route: 065

REACTIONS (2)
  - Drug ineffective [Unknown]
  - Transient ischaemic attack [Unknown]
